FAERS Safety Report 10929992 (Version 1)
Quarter: 2015Q1

REPORT INFORMATION
  Report Type: Spontaneous
  Country: US (occurrence: None)
  Receive Date: 20150318
  Receipt Date: 20150318
  Transmission Date: 20150721
  Serious: No
  Sender: FDA-Public Use
  Company Number: None

PATIENT
  Age: 61 Year
  Sex: Male
  Weight: 122.93 kg

DRUGS (3)
  1. GLIPIZIDE. [Suspect]
     Active Substance: GLIPIZIDE
     Indication: GLYCOSYLATED HAEMOGLOBIN INCREASED
     Dosage: 1
     Route: 048
     Dates: start: 20150302, end: 20150316
  2. LEVAQUINN [Concomitant]
  3. VIT. E [Concomitant]

REACTIONS (4)
  - Acidosis [None]
  - Heart rate increased [None]
  - Dizziness [None]
  - Dyspnoea [None]

NARRATIVE: CASE EVENT DATE: 20150316
